FAERS Safety Report 6626359-2 (Version None)
Quarter: 2010Q1

REPORT INFORMATION
  Report Type: 
  Country: None (occurrence: None)
  Receive Date: 20100310
  Receipt Date: 20100224
  Transmission Date: 20100710
  Serious: Yes (Other)
  Sender: FDA-Public Use
  Company Number: GB-PFIZER INC-2010024546

PATIENT
  Sex: Male

DRUGS (8)
  1. EDRONAX [Interacting]
     Indication: DEPRESSION
     Dosage: UNK
     Dates: start: 20100223
  2. DOXAZOSIN MESILATE [Suspect]
  3. COLOFAC [Interacting]
     Indication: IRRITABLE BOWEL SYNDROME
  4. RANITIDINE [Interacting]
  5. MOTILIUM [Interacting]
  6. NEXIUM [Interacting]
  7. BISOPROLOL [Interacting]
  8. BENDROFLUMETHIAZIDE [Interacting]

REACTIONS (3)
  - DRUG INTERACTION [None]
  - FATIGUE [None]
  - SEDATION [None]
